FAERS Safety Report 5382411-3 (Version None)
Quarter: 2007Q3

REPORT INFORMATION
  Report Type: 
  Country: None (occurrence: None)
  Receive Date: 20070709
  Receipt Date: 20070629
  Transmission Date: 20080115
  Serious: Yes (Life-Threatening, Hospitalization)
  Sender: FDA-Public Use
  Company Number: JP-MERCK-0706USA02626

PATIENT
  Age: 69 Year
  Sex: Female

DRUGS (10)
  1. FOSAMAX [Suspect]
     Indication: OSTEOPOROSIS
     Route: 048
     Dates: start: 20061212, end: 20070430
  2. PREDNISOLONE [Concomitant]
     Indication: POLYMYOSITIS
     Route: 048
  3. PREDNISOLONE [Concomitant]
     Route: 048
  4. AMLODIN [Concomitant]
     Indication: HYPERTENSION
     Route: 048
  5. ARTIST [Concomitant]
     Indication: HYPERTENSION
     Route: 065
  6. TAKEPRON [Concomitant]
     Indication: GASTRIC ULCER
     Route: 065
  7. MAGLAX [Concomitant]
     Indication: CONSTIPATION
     Route: 065
  8. AMARYL [Concomitant]
     Indication: DIABETES MELLITUS
     Route: 065
  9. VOLTAREN [Concomitant]
     Indication: POLYMYOSITIS
     Route: 065
  10. MIGLITOL [Concomitant]
     Indication: DIABETES MELLITUS
     Route: 065

REACTIONS (1)
  - SPONDYLITIS [None]
